FAERS Safety Report 6781188-4 (Version None)
Quarter: 2010Q2

REPORT INFORMATION
  Report Type: 
  Country: None (occurrence: None)
  Receive Date: 20100621
  Receipt Date: 20100614
  Transmission Date: 20101027
  Serious: Yes (Other)
  Sender: FDA-Public Use
  Company Number: JP-PFIZER INC-2010074352

PATIENT

DRUGS (1)
  1. SOLU-MEDROL [Suspect]
     Dosage: 1000 MG, UNK
     Route: 042

REACTIONS (3)
  - ANXIETY [None]
  - CONFUSIONAL STATE [None]
  - DEPRESSION [None]
